FAERS Safety Report 5494544-1 (Version None)
Quarter: 2007Q4

REPORT INFORMATION
  Report Type: 
  Country: None (occurrence: None)
  Receive Date: 20071022
  Receipt Date: 20071010
  Transmission Date: 20080405
  Serious: Yes (Other)
  Sender: FDA-Public Use
  Company Number: 2007-03374

PATIENT
  Age: 68 Year
  Sex: Male
  Weight: 105.7 kg

DRUGS (6)
  1. VELCADE [Suspect]
     Indication: MULTIPLE MYELOMA
     Dosage: INTRAVENOUS
     Route: 042
     Dates: start: 20070910, end: 20071008
  2. WARFARIN SODIUM [Suspect]
     Indication: THROMBOSIS
     Dosage: ORAL
     Route: 048
     Dates: start: 20070901
  3. LOVENOX [Concomitant]
  4. NEXIUM [Concomitant]
  5. LIPITOR [Concomitant]
  6. LEXAPRO [Concomitant]

REACTIONS (16)
  - ASTHENIA [None]
  - BALANCE DISORDER [None]
  - CONFUSIONAL STATE [None]
  - DIARRHOEA [None]
  - DIZZINESS [None]
  - DYSPNOEA [None]
  - HEADACHE [None]
  - HYPOAESTHESIA [None]
  - INCREASED TENDENCY TO BRUISE [None]
  - INSOMNIA [None]
  - PAIN [None]
  - PAIN IN EXTREMITY [None]
  - SKIN DISCOLOURATION [None]
  - SLEEP TALKING [None]
  - SPEECH DISORDER [None]
  - URINE COLOUR ABNORMAL [None]
